FAERS Safety Report 24957747 (Version 3)
Quarter: 2025Q2

REPORT INFORMATION
  Report Type: Report from Study
  Country: BR (occurrence: BR)
  Receive Date: 20250212
  Receipt Date: 20250411
  Transmission Date: 20250716
  Serious: Yes (Other)
  Sender: NOVARTIS
  Company Number: BR-002147023-NVSC2024BR158578

PATIENT
  Sex: Female

DRUGS (3)
  1. KESIMPTA [Suspect]
     Active Substance: OFATUMUMAB
     Indication: Multiple sclerosis
     Route: 065
     Dates: start: 20240704
  2. KESIMPTA [Suspect]
     Active Substance: OFATUMUMAB
     Route: 065
     Dates: start: 20240705
  3. KESIMPTA [Suspect]
     Active Substance: OFATUMUMAB
     Route: 065
     Dates: start: 20250102

REACTIONS (27)
  - Hypothermia [Unknown]
  - Pain [Not Recovered/Not Resolved]
  - Erythema [Recovered/Resolved]
  - Feeding disorder [Unknown]
  - Skin burning sensation [Unknown]
  - Malaise [Unknown]
  - Headache [Not Recovered/Not Resolved]
  - Migraine [Unknown]
  - Fatigue [Unknown]
  - Ear discomfort [Unknown]
  - Tinnitus [Unknown]
  - Dizziness [Unknown]
  - Head discomfort [Unknown]
  - Neuralgia [Unknown]
  - Pyrexia [Not Recovered/Not Resolved]
  - Rash [Not Recovered/Not Resolved]
  - Trigeminal neuralgia [Not Recovered/Not Resolved]
  - Urinary tract infection [Not Recovered/Not Resolved]
  - Pharyngeal swelling [Unknown]
  - Abdominal pain [Unknown]
  - Insomnia [Unknown]
  - Muscle spasms [Unknown]
  - Skin burning sensation [Unknown]
  - Hypersensitivity [Unknown]
  - Oropharyngeal pain [Unknown]
  - Chills [Unknown]
  - Mobility decreased [Unknown]
